FAERS Safety Report 6709065-5 (Version None)
Quarter: 2010Q2

REPORT INFORMATION
  Report Type: 
  Country: None (occurrence: None)
  Receive Date: 20100504
  Receipt Date: 20100423
  Transmission Date: 20101027
  Serious: Yes (Disabling)
  Sender: FDA-Public Use
  Company Number: DK-BRACCO-000049

PATIENT
  Sex: Male
  Weight: 75 kg

DRUGS (8)
  1. CONTRAST MEDIA [Suspect]
     Indication: SCAN WITH CONTRAST
     Route: 042
     Dates: start: 20020531, end: 20020531
  2. DIURAL [Concomitant]
  3. ETALPHA [Concomitant]
  4. APURIN [Concomitant]
  5. KALEORID [Concomitant]
     Route: 048
  6. SELOZOK [Concomitant]
  7. CARDIZEM [Concomitant]
  8. LACTULOSE [Concomitant]

REACTIONS (1)
  - NEPHROGENIC SYSTEMIC FIBROSIS [None]
